FAERS Safety Report 4317502-9 (Version None)
Quarter: 2004Q1

REPORT INFORMATION
  Report Type: 
  Country: None (occurrence: None)
  Receive Date: 20040312
  Receipt Date: 20040304
  Transmission Date: 20041129
  Serious: Yes (Other)
  Sender: FDA-Public Use
  Company Number: 2004-03-0380

PATIENT

DRUGS (2)
  1. PEG-INTERFERON AFAL-2B INECTABLE POWDER [Suspect]
     Dosage: SUBCUTANEOUS
     Route: 058
  2. RIBAVIRIN [Suspect]
     Dosage: ORAL
     Route: 048

REACTIONS (2)
  - HAEMOGLOBIN DECREASED [None]
  - WHITE BLOOD CELL COUNT DECREASED [None]
